FAERS Safety Report 6653141-2 (Version None)
Quarter: 2010Q1

REPORT INFORMATION
  Report Type: 
  Country: None (occurrence: None)
  Receive Date: 20100326
  Receipt Date: 20100323
  Transmission Date: 20100710
  Serious: Yes (Death, Hospitalization)
  Sender: FDA-Public Use
  Company Number: PHHO2006PL17387

PATIENT
  Sex: Female
  Weight: 66 kg

DRUGS (11)
  1. TASIGNA [Suspect]
     Indication: CHRONIC MYELOID LEUKAEMIA
     Dosage: 800 MG, QD
     Route: 048
     Dates: start: 20061012, end: 20061026
  2. VINCRISTINE [Suspect]
  3. CYCLOPHOSPHAMIDE [Suspect]
  4. CYTARABINE [Suspect]
  5. METAMIZOL [Concomitant]
     Indication: PYREXIA
  6. CHOP [Concomitant]
  7. PIPERACILLIN AND TAZOBACTAM [Concomitant]
  8. PREDNISONE TAB [Concomitant]
  9. FLUCONAZOLE [Concomitant]
  10. VITACON [Concomitant]
  11. AUGMENTIN [Concomitant]

REACTIONS (15)
  - ANAEMIA [None]
  - BLAST CELLS PRESENT [None]
  - CHILLS [None]
  - CHRONIC MYELOID LEUKAEMIA [None]
  - CIRCULATORY COLLAPSE [None]
  - HAEMOGLOBIN ABNORMAL [None]
  - HERPES SIMPLEX [None]
  - HYPOTONIA [None]
  - INFECTION [None]
  - LEUKOCYTOSIS [None]
  - MALIGNANT NEOPLASM PROGRESSION [None]
  - MYOCARDIAL INFARCTION [None]
  - PYREXIA [None]
  - THROMBOCYTOPENIA [None]
  - URINARY TRACT INFECTION [None]
